FAERS Safety Report 8451783 (Version 5)
Quarter: 2012Q4

REPORT INFORMATION
  Report Type: Report from Study
  Country: GB (occurrence: GB)
  Receive Date: 20120309
  Receipt Date: 20121227
  Transmission Date: 20130627
  Serious: Yes (Hospitalization)
  Sender: FDA-Public Use
  Company Number: GB-GLAXOSMITHKLINE-B0647355A

PATIENT
  Age: 76 Year
  Sex: Female
  Weight: 93.5 kg

DRUGS (15)
  1. LAPATINIB [Suspect]
     Indication: BREAST CANCER METASTATIC
     Dosage: 1250MG Per day
     Route: 048
     Dates: start: 20100330
  2. DOCETAXEL [Suspect]
     Indication: BREAST CANCER METASTATIC
     Dosage: 145MG Cyclic
     Route: 042
     Dates: start: 20100330
  3. SIMVASTATIN [Concomitant]
     Indication: BLOOD CHOLESTEROL
     Dosage: 40MG At night
     Route: 048
     Dates: start: 20060720
  4. CALCICHEW [Concomitant]
     Indication: SUPPLEMENTATION THERAPY
     Route: 048
     Dates: start: 20060720
  5. SODIUM DOCUSATE [Concomitant]
     Indication: CONSTIPATION
     Dosage: 200MG Twice per day
     Route: 048
     Dates: start: 20060720
  6. FUROSEMIDE [Concomitant]
     Indication: DIURETIC THERAPY
     Dosage: 40MG Twice per day
     Route: 048
     Dates: start: 20060720
  7. METOCLOPRAMIDE [Concomitant]
     Indication: VOMITING
     Dosage: 20MG As required
     Route: 048
     Dates: start: 20060720
  8. NYSTATIN [Concomitant]
     Route: 061
  9. ASPIRIN [Concomitant]
     Indication: PROPHYLAXIS
     Dosage: 75MG Per day
     Route: 048
     Dates: start: 20060720
  10. AMITRIPTYLIN [Concomitant]
     Indication: DEPRESSION
     Dosage: 25MG At night
     Dates: start: 20060720
  11. CLEXANE [Concomitant]
     Route: 058
     Dates: start: 20100403
  12. SANDO-K [Concomitant]
     Route: 048
     Dates: start: 20100405
  13. COLCHICINE [Concomitant]
     Route: 048
     Dates: start: 20100406
  14. FLUCONAZOLE [Concomitant]
     Route: 048
     Dates: start: 20100404, end: 20100411
  15. DOMPERIDONE [Concomitant]
     Dates: start: 20100405

REACTIONS (3)
  - Arthralgia [Recovered/Resolved]
  - Fatigue [Recovered/Resolved]
  - Nausea [Recovered/Resolved]
